FAERS Safety Report 4370119-2 (Version None)
Quarter: 2004Q2

REPORT INFORMATION
  Report Type: 
  Country: None (occurrence: None)
  Receive Date: 20040527
  Receipt Date: 20040519
  Transmission Date: 20050107
  Serious: Yes (Hospitalization)
  Sender: FDA-Public Use
  Company Number: CA-JNJFOC-20040200708

PATIENT
  Age: 80 Year
  Sex: Female
  Weight: 42 kg

DRUGS (8)
  1. GALANTAMINE [Suspect]
     Indication: COGNITIVE DISORDER
     Dosage: 8 MG, 2 IN 1 DAY, ORAL
     Route: 048
     Dates: start: 20031008, end: 20040324
  2. LEVODOPA [Concomitant]
  3. IMOVANE (ZOPICLONE) [Concomitant]
  4. CALOTRATE PLUS [Concomitant]
  5. MULTI-VITAMINS [Concomitant]
  6. TYLENOL  ES (PARACETAMOL) [Concomitant]
  7. FOSAMAX [Concomitant]
  8. ACETYLSALICYLIC ACID SRT [Concomitant]

REACTIONS (14)
  - AGITATION [None]
  - AMYLOIDOSIS [None]
  - ANGIOPATHY [None]
  - BALANCE DISORDER [None]
  - CEREBRAL HAEMORRHAGE [None]
  - COORDINATION ABNORMAL [None]
  - DISORIENTATION [None]
  - DYSPHAGIA [None]
  - HEMIANOPIA HOMONYMOUS [None]
  - MEMORY IMPAIRMENT [None]
  - SINUS TACHYCARDIA [None]
  - SPEECH DISORDER [None]
  - VISUAL FIELD DEFECT [None]
  - WHITE BLOOD CELL COUNT INCREASED [None]
